FAERS Safety Report 9526558 (Version 1)
Quarter: 2013Q3

REPORT INFORMATION
  Report Type: Spontaneous
  Country: US (occurrence: US)
  Receive Date: 20130916
  Receipt Date: 20130916
  Transmission Date: 20140515
  Serious: No
  Sender: FDA-Public Use
  Company Number: US-PFIZER INC-2013264424

PATIENT
  Sex: Male

DRUGS (4)
  1. CHANTIX [Suspect]
     Dosage: 0.5 MG, UNK
  2. CHANTIX [Suspect]
     Dosage: 1 MG, UNK
  3. CHANTIX [Suspect]
     Dosage: 2 MG, UNK
  4. CHANTIX [Suspect]
     Dosage: 1 MG, UNK
     Dates: start: 201309

REACTIONS (4)
  - Abnormal dreams [Unknown]
  - Aggression [Unknown]
  - Agitation [Unknown]
  - Depression [Unknown]
